FAERS Safety Report 8778740 (Version 2)
Quarter: 2012Q4

REPORT INFORMATION
  Report Type: 
  Country: US (occurrence: US)
  Receive Date: 20120912
  Receipt Date: 20121003
  Transmission Date: 20130627
  Serious: Yes (Hospitalization)
  Sender: FDA-Public Use
  Company Number: US-GILEAD-2012-0060952

PATIENT
  Age: 75 None
  Sex: Male

DRUGS (1)
  1. LETAIRIS [Suspect]
     Indication: PRODUCT USED FOR UNKNOWN INDICATION
     Dosage: 5 mg, QD
     Route: 048
     Dates: start: 20120829, end: 20120923

REACTIONS (4)
  - Condition aggravated [Unknown]
  - Pneumothorax [Unknown]
  - Chest tube insertion [Unknown]
  - Dyspnoea [Not Recovered/Not Resolved]
